FAERS Safety Report 11787894 (Version 1)
Quarter: 2015Q4

REPORT INFORMATION
  Report Type: Report from Study
  Country: US (occurrence: US)
  Receive Date: 20151130
  Receipt Date: 20151130
  Transmission Date: 20160305
  Serious: No
  Sender: FDA-Public Use
  Company Number: US-AMGEN-USASL2015125605

PATIENT
  Age: 55 Year
  Sex: Female

DRUGS (1)
  1. ENBREL [Suspect]
     Active Substance: ETANERCEPT
     Indication: RHEUMATOID ARTHRITIS
     Dosage: 50 MG, QWK
     Route: 065
     Dates: start: 20141212

REACTIONS (11)
  - Weight decreased [Unknown]
  - Lymphadenopathy [Unknown]
  - Upper respiratory tract infection [Unknown]
  - Synovitis [Unknown]
  - Hand deformity [Unknown]
  - Arthropathy [Unknown]
  - Mobility decreased [Unknown]
  - Cough [Unknown]
  - Malaise [Unknown]
  - Peripheral swelling [Unknown]
  - Joint swelling [Unknown]
